FAERS Safety Report 21090954 (Version 1)
Quarter: 2022Q3

REPORT INFORMATION
  Report Type: Report from Study
  Country: ES (occurrence: ES)
  Receive Date: 20220716
  Receipt Date: 20220716
  Transmission Date: 20221027
  Serious: Yes (Life-Threatening, Hospitalization)
  Sender: FDA-Public Use
  Company Number: None

PATIENT
  Age: 34 Year
  Sex: Female

DRUGS (4)
  1. QUETIAPINE [Suspect]
     Active Substance: QUETIAPINE
     Indication: Intentional overdose
     Dosage: QUETIAPINA (1136A), UNIT DOSE: 8 G , FREQUENCY : 1 TOTAL
     Dates: start: 20220515, end: 20220515
  2. CLONAZEPAM [Suspect]
     Active Substance: CLONAZEPAM
     Indication: Intentional overdose
     Dosage: CLONAZEPAM (635A), UNIT DOSE: 15 G , FREQUENCY : 1 TOTAL
     Dates: start: 20220515, end: 20220515
  3. TOPIRAMATE [Concomitant]
     Active Substance: TOPIRAMATE
     Indication: Borderline personality disorder
     Dosage: TOPIRAMATO (7245A), UNIT DOSE: 400 MG , FREQUENCY : 1 DAYS
     Dates: start: 200909
  4. OXCARBAZEPINE [Concomitant]
     Active Substance: OXCARBAZEPINE
     Indication: Borderline personality disorder
     Dosage: OXCARBAZEPINA (2570A), UNIT DOSE: 900 MG , FREQUENCY : 1 DAYS
     Dates: start: 20210623

REACTIONS (2)
  - Depressed level of consciousness [Recovered/Resolved]
  - Intentional overdose [Recovered/Resolved]

NARRATIVE: CASE EVENT DATE: 20220515
